FAERS Safety Report 25238716 (Version 1)
Quarter: 2025Q2

REPORT INFORMATION
  Report Type: Spontaneous
  Country: DE (occurrence: DE)
  Receive Date: 20250425
  Receipt Date: 20250425
  Transmission Date: 20250717
  Serious: Yes (Hospitalization, Other)
  Sender: CHEPLAPHARM
  Company Number: None

PATIENT
  Sex: Male
  Weight: 3.61 kg

DRUGS (10)
  1. QUETIAPINE [Suspect]
     Active Substance: QUETIAPINE
     Dosage: DAILY DOSE: 25 MILLIGRAM
     Route: 064
     Dates: start: 202306, end: 202404
  2. BUPROPION [Suspect]
     Active Substance: BUPROPION
     Dosage: DAILY DOSE: 150 MILLIGRAM
     Route: 064
     Dates: start: 202306, end: 202404
  3. LITHIUM [Suspect]
     Active Substance: LITHIUM
     Dosage: DOSAGE INCREASED DURING PREGNANCY, AT LEAST UNTIL GW 4 ONLY 225 MG/D
     Route: 064
     Dates: start: 202306, end: 202404
  4. LITHIUM [Suspect]
     Active Substance: LITHIUM
     Dosage: DOSAGE INCREASED DURING PREGNANCY, AT LEAST UNTIL GW 4 ONLY 225 MG/D?DAILY DOSE: 225 MILLIGRAM
     Route: 064
  5. MIRTAZAPINE [Suspect]
     Active Substance: MIRTAZAPINE
     Dosage: DAILY DOSE: 15 MILLIGRAM
     Route: 064
     Dates: start: 202306, end: 202404
  6. SERTRALINE [Suspect]
     Active Substance: SERTRALINE HYDROCHLORIDE
     Dosage: DAILY DOSE: 150 MILLIGRAM
     Route: 064
     Dates: start: 202306, end: 202404
  7. FOLIC ACID [Concomitant]
     Active Substance: FOLIC ACID
     Dosage: UNKNOWN WHETHER FOLIC ACID WAS COTINUED DURING THE ENTIRE PREGNANCY
     Route: 064
     Dates: start: 202306, end: 202307
  8. INSULIN NOS [Concomitant]
     Active Substance: INSULIN NOS
     Route: 064
  9. LEVOTHYROXINE [Concomitant]
     Active Substance: LEVOTHYROXINE
     Dosage: 150-175 UG/D?DAILY DOSE: 175 MICROGRAM
     Route: 064
     Dates: start: 202306, end: 202404
  10. HERBALS\MITRAGYNINE [Concomitant]
     Active Substance: HERBALS\MITRAGYNINE
     Route: 064

REACTIONS (5)
  - Drug withdrawal syndrome neonatal [Recovered/Resolved]
  - Agitation neonatal [Recovered/Resolved]
  - Temperature regulation disorder [Recovered/Resolved]
  - Neonatal tachypnoea [Recovered/Resolved]
  - Foetal exposure during pregnancy [Unknown]

NARRATIVE: CASE EVENT DATE: 20240401
